FAERS Safety Report 5990411-5 (Version None)
Quarter: 2008Q4

REPORT INFORMATION
  Report Type: 
  Country: None (occurrence: None)
  Receive Date: 20081209
  Receipt Date: 20081124
  Transmission Date: 20090506
  Serious: Yes (Other)
  Sender: FDA-Public Use
  Company Number: 2008S1021130

PATIENT
  Age: 27 Year
  Sex: Female

DRUGS (1)
  1. MIRTAZAPINE [Suspect]
     Indication: DRUG USE FOR UNKNOWN INDICATION
     Dosage: 360 MG; ONCE; ORAL
     Route: 048
     Dates: start: 20081120, end: 20081120

REACTIONS (3)
  - FATIGUE [None]
  - INTENTIONAL OVERDOSE [None]
  - VOMITING [None]
